FAERS Safety Report 4318768-1 (Version None)
Quarter: 2004Q1

REPORT INFORMATION
  Report Type: 
  Country: None (occurrence: None)
  Receive Date: 20040315
  Receipt Date: 20040303
  Transmission Date: 20041129
  Serious: Yes (Death, Hospitalization)
  Sender: FDA-Public Use
  Company Number: 163-20785-03120475(0)

PATIENT
  Age: 50 Year
  Sex: Female

DRUGS (3)
  1. THALOMID [Suspect]
     Indication: METASTASES TO BONE
     Dosage: 400 MG, AT BEDTIME, ORAL
     Route: 048
     Dates: start: 20031124
  2. THALOMID [Suspect]
     Indication: METASTATIC RENAL CELL CARCINOMA
     Dosage: 400 MG, AT BEDTIME, ORAL
     Route: 048
     Dates: start: 20031124
  3. INTERLEUKIN-2 (INTERLEUKIN-2)(UNKNOWN) [Suspect]

REACTIONS (5)
  - HYPERTENSION [None]
  - MALIGNANT NEOPLASM PROGRESSION [None]
  - METASTATIC RENAL CELL CARCINOMA [None]
  - OEDEMA [None]
  - PAIN [None]
